FAERS Safety Report 9421774 (Version 2)
Quarter: 2015Q2

REPORT INFORMATION
  Report Type: Report from Study
  Country: GB (occurrence: GB)
  Receive Date: 20130726
  Receipt Date: 20150520
  Transmission Date: 20150821
  Serious: Yes (Death)
  Sender: FDA-Public Use
  Company Number: GB-ROCHE-1253134

PATIENT
  Age: 53 Year
  Sex: Male
  Weight: 92 kg

DRUGS (4)
  1. BEVACIZUMAB [Suspect]
     Active Substance: BEVACIZUMAB
     Indication: GASTRIC CANCER
     Dosage: MOST RECENT DOSE WAS TAKEN ON 04/APR/2013 AND ACTUAL DOSE TAKEN AT MOST RECENT ADMINISTRATION WAS 65
     Route: 042
     Dates: start: 20130221
  2. CAPECITABINE. [Suspect]
     Active Substance: CAPECITABINE
     Indication: GASTRIC CANCER
     Dosage: MOST RECENT DOSE WAS TAKEN ON 25/APR/2013 AND ACTUAL DOSE TAKEN AT MOST RECENT ADMINISTRATION WAS 25
     Route: 048
     Dates: start: 20130221
  3. CISPLATIN. [Suspect]
     Active Substance: CISPLATIN
     Indication: GASTRIC CANCER
     Dosage: MOST RECENT DOSE WAS TAKEN ON 04/APR/2013 AND ACTUAL DOSE TAKEN AT MOST RECENT ADMINISTRATION WAS 13
     Route: 042
     Dates: start: 20130221
  4. EPIRUBICIN [Suspect]
     Active Substance: EPIRUBICIN
     Indication: GASTRIC CANCER
     Dosage: MOST RECENT DOSE WAS TAKEN ON 04/APR/2013 AND ACTUAL DOSE TAKEN AT MOST RECENT ADMINISTRATION WAS 10
     Route: 042
     Dates: start: 20130221

REACTIONS (1)
  - Anastomotic leak [Fatal]

NARRATIVE: CASE EVENT DATE: 20130620
